FAERS Safety Report 7693812-2 (Version None)
Quarter: 2011Q3

REPORT INFORMATION
  Report Type: 
  Country: None (occurrence: None)
  Receive Date: 20110819
  Receipt Date: 20110722
  Transmission Date: 20111222
  Serious: No
  Sender: FDA-Public Use
  Company Number: US-ALLERGAN-1110091US

PATIENT
  Age: 65 Year
  Sex: Male

DRUGS (1)
  1. LASTACAFT [Suspect]
     Indication: SEASONAL ALLERGY
     Dosage: 1 GTT, MORNINGS
     Route: 047
     Dates: end: 20110725

REACTIONS (2)
  - DERMATITIS CONTACT [None]
  - CONJUNCTIVAL HAEMORRHAGE [None]
